FAERS Safety Report 25790702 (Version 1)
Quarter: 2025Q3

REPORT INFORMATION
  Report Type: Report from Study
  Country: US (occurrence: US)
  Receive Date: 20250911
  Receipt Date: 20250911
  Transmission Date: 20251021
  Serious: Yes (Death)
  Sender: ROCHE
  Company Number: US-ROCHE-10000371088

PATIENT
  Age: 39 Year
  Sex: Female

DRUGS (2)
  1. OCREVUS [Suspect]
     Active Substance: OCRELIZUMAB
     Indication: Secondary progressive multiple sclerosis
     Route: 042
     Dates: start: 20240404, end: 20250306
  2. OCREVUS [Suspect]
     Active Substance: OCRELIZUMAB
     Dosage: 300
     Route: 042
     Dates: start: 20250220, end: 20250306

REACTIONS (2)
  - Pulmonary embolism [Fatal]
  - Off label use [Unknown]

NARRATIVE: CASE EVENT DATE: 20250220
